FAERS Safety Report 5788301-6 (Version None)
Quarter: 2008Q2

REPORT INFORMATION
  Report Type: 
  Country: None (occurrence: None)
  Receive Date: 20080625
  Receipt Date: 20080617
  Transmission Date: 20081010
  Serious: Yes (Hospitalization)
  Sender: FDA-Public Use
  Company Number: US-MERCK-0705USA04168

PATIENT
  Age: 41 Year
  Sex: Female

DRUGS (6)
  1. FOSAMAX [Suspect]
     Indication: RESORPTION BONE INCREASED
     Route: 048
     Dates: start: 20060301, end: 20060601
  2. FOSAMAX [Suspect]
     Route: 048
     Dates: start: 20050901, end: 20060331
  3. FOSAMAX [Suspect]
     Indication: OSTEOPOROSIS
     Route: 048
     Dates: start: 20060301, end: 20060601
  4. FOSAMAX [Suspect]
     Route: 048
     Dates: start: 20050901, end: 20060331
  5. TOPAMAX [Concomitant]
     Route: 065
     Dates: start: 20040101
  6. IMITREX [Concomitant]
     Route: 065
     Dates: start: 20040101

REACTIONS (18)
  - ASTHMA [None]
  - BENIGN INTRACRANIAL HYPERTENSION [None]
  - CONSTIPATION [None]
  - FIBROMYALGIA [None]
  - GASTROINTESTINAL DISORDER [None]
  - GINGIVAL BLEEDING [None]
  - HEADACHE [None]
  - HYPERTENSION [None]
  - HYPOCHROMIC ANAEMIA [None]
  - IRRITABLE BOWEL SYNDROME [None]
  - OEDEMA [None]
  - PAIN [None]
  - PAIN IN JAW [None]
  - PAPILLOEDEMA [None]
  - TINNITUS [None]
  - TRISMUS [None]
  - VESTIBULITIS [None]
  - VISUAL DISTURBANCE [None]
